FAERS Safety Report 20991246 (Version 1)
Quarter: 2022Q2

REPORT INFORMATION
  Report Type: Spontaneous
  Country: US (occurrence: US)
  Receive Date: 20220622
  Receipt Date: 20220622
  Transmission Date: 20220721
  Serious: No
  Sender: FDA-Public Use
  Company Number: US-MAYNE PHARMA-2022MYN000001

PATIENT
  Sex: Female

DRUGS (8)
  1. ERYTHROMYCIN [Suspect]
     Active Substance: ERYTHROMYCIN
     Indication: Product used for unknown indication
  2. SULFAMETHOXAZOLE AND TRIMETHOPRIM [Suspect]
     Active Substance: SULFAMETHOXAZOLE\TRIMETHOPRIM
     Indication: Product used for unknown indication
  3. AZITHROMYCIN [Suspect]
     Active Substance: AZITHROMYCIN
  4. CEFDINIR [Suspect]
     Active Substance: CEFDINIR
  5. MICONAZOLE NITRATE [Concomitant]
     Active Substance: MICONAZOLE NITRATE
  6. BACITRACIN ZINC [Concomitant]
     Active Substance: BACITRACIN ZINC
  7. NEOMYCIN SULFATE [Concomitant]
     Active Substance: NEOMYCIN SULFATE
  8. POLYMYXIN B SULFATE [Concomitant]
     Active Substance: POLYMYXIN B SULFATE

REACTIONS (1)
  - Drug hypersensitivity [Unknown]
